FAERS Safety Report 6128163-0 (Version None)
Quarter: 2009Q1

REPORT INFORMATION
  Report Type: 
  Country: None (occurrence: None)
  Receive Date: 20090323
  Receipt Date: 20090309
  Transmission Date: 20090719
  Serious: Yes (Other)
  Sender: FDA-Public Use
  Company Number: US-ROCHE-573116

PATIENT
  Sex: Female

DRUGS (2)
  1. PEG-INTERFERON A-2A (RO 25-8310) [Suspect]
     Indication: HEPATITIS C
     Dosage: FORM: PRE-FILLED SYRINGE PATIENT IN WEEK 41
     Route: 065
     Dates: start: 20080604
  2. RIBAVIRIN [Suspect]
     Indication: HEPATITIS C
     Dosage: DIVIDED DOSES PATIENT IN WEEK 41
     Route: 065
     Dates: start: 20080604

REACTIONS (16)
  - ALOPECIA [None]
  - BLOOD CREATINE PHOSPHOKINASE INCREASED [None]
  - CONTUSION [None]
  - DECREASED APPETITE [None]
  - DEHYDRATION [None]
  - DEPRESSION [None]
  - EYE PAIN [None]
  - FATIGUE [None]
  - HAEMOGLOBIN DECREASED [None]
  - HEADACHE [None]
  - NASAL ULCER [None]
  - NAUSEA [None]
  - PLATELET COUNT DECREASED [None]
  - RED BLOOD CELL COUNT DECREASED [None]
  - WEIGHT DECREASED [None]
  - WHITE BLOOD CELL COUNT DECREASED [None]
